FAERS Safety Report 23150800 (Version 1)
Quarter: 2023Q4

REPORT INFORMATION
  Report Type: Spontaneous
  Country: CA (occurrence: CA)
  Receive Date: 20231106
  Receipt Date: 20231106
  Transmission Date: 20240109
  Serious: Yes (Death, Life-Threatening)
  Sender: FDA-Public Use
  Company Number: CA-MYLANLABS-2023M1117809

PATIENT
  Age: 78 Year
  Sex: Male
  Weight: 93 kg

DRUGS (1)
  1. LAMOTRIGINE [Suspect]
     Active Substance: LAMOTRIGINE
     Indication: Seizure
     Dosage: UNK
     Route: 065

REACTIONS (10)
  - Enanthema [Fatal]
  - Haemoptysis [Fatal]
  - Mucosal pain [Fatal]
  - Oxygen therapy [Fatal]
  - Pneumonia aspiration [Fatal]
  - Rash erythematous [Fatal]
  - Rash macular [Fatal]
  - Septic shock [Fatal]
  - Skin exfoliation [Fatal]
  - Stevens-Johnson syndrome [Fatal]
